FAERS Safety Report 21576447 (Version 2)
Quarter: 2023Q1

REPORT INFORMATION
  Report Type: Report from Study
  Country: CA (occurrence: CA)
  Receive Date: 20221110
  Receipt Date: 20230330
  Transmission Date: 20230418
  Serious: Yes (Other)
  Sender: FDA-Public Use
  Company Number: CA-JNJFOC-20220333709

PATIENT
  Age: 30 Year
  Sex: Female

DRUGS (3)
  1. REMICADE [Suspect]
     Active Substance: INFLIXIMAB
     Indication: Crohn^s disease
     Dosage: SHE CANCELLED HER 08-NOV-2022 APPOINTMENT AND REBOOKED TO 14-NOV-2022
     Route: 042
     Dates: start: 20110908
  2. REMICADE [Suspect]
     Active Substance: INFLIXIMAB
     Dosage: 500 MG
     Route: 042
     Dates: start: 201905
  3. REMICADE [Suspect]
     Active Substance: INFLIXIMAB
     Dosage: ON 07-APR-2022, THE PATIENT HAD RECEIVED 74TH INFLIXIMAB INFUSION AT DOSE OF 600MG?EXPIRATION DATE-
     Route: 042

REACTIONS (6)
  - Exposure during pregnancy [Recovered/Resolved]
  - Caesarean section [Unknown]
  - SARS-CoV-2 test positive [Unknown]
  - Abdominal pain [Unknown]
  - Diarrhoea [Unknown]
  - Frequent bowel movements [Unknown]

NARRATIVE: CASE EVENT DATE: 20220101
